FAERS Safety Report 8057621-7 (Version None)
Quarter: 2012Q1

REPORT INFORMATION
  Report Type: 
  Country: None (occurrence: None)
  Receive Date: 20120120
  Receipt Date: 20120112
  Transmission Date: 20120608
  Serious: No
  Sender: FDA-Public Use
  Company Number: US-BIOGENIDEC-2011BI024825

PATIENT
  Age: 36 Year
  Sex: Female

DRUGS (1)
  1. TYSABRI [Suspect]
     Indication: MULTIPLE SCLEROSIS
     Route: 042
     Dates: start: 20110603, end: 20111101

REACTIONS (32)
  - PYREXIA [None]
  - HYPOAESTHESIA [None]
  - TREMOR [None]
  - HYPOTENSION [None]
  - BRONCHITIS [None]
  - ERYTHEMA [None]
  - CONCUSSION [None]
  - HYPERSOMNIA [None]
  - BLADDER DYSFUNCTION [None]
  - FATIGUE [None]
  - PAIN [None]
  - HEAD INJURY [None]
  - MYALGIA [None]
  - INFLUENZA LIKE ILLNESS [None]
  - FUNCTIONAL GASTROINTESTINAL DISORDER [None]
  - PRURITUS [None]
  - NASOPHARYNGITIS [None]
  - RASH PAPULAR [None]
  - FALL [None]
  - OROPHARYNGEAL PAIN [None]
  - BALANCE DISORDER [None]
  - DIZZINESS [None]
  - ASTHENIA [None]
  - SWELLING FACE [None]
  - EYE DISORDER [None]
  - ABDOMINAL PAIN [None]
  - MUSCLE SPASMS [None]
  - SINUSITIS [None]
  - OEDEMA PERIPHERAL [None]
  - HYPERSENSITIVITY [None]
  - LACERATION [None]
  - DYSPNOEA [None]
